FAERS Safety Report 7345082-2 (Version None)
Quarter: 2011Q1

REPORT INFORMATION
  Report Type: 
  Country: None (occurrence: None)
  Receive Date: 20110310
  Receipt Date: 20110303
  Transmission Date: 20110831
  Serious: Yes (Other)
  Sender: FDA-Public Use
  Company Number: SE-TEVA-269719ISR

PATIENT
  Age: 58 Year
  Sex: Male

DRUGS (4)
  1. OXAZEPAM [Suspect]
     Route: 048
     Dates: start: 20081201
  2. DIAZEPAM [Suspect]
     Dates: start: 20081201
  3. MIRTAZAPINE [Suspect]
     Route: 048
     Dates: start: 20081201
  4. PROPIOMAZINE MALEATE [Suspect]
     Route: 048
     Dates: start: 20081201

REACTIONS (4)
  - WEIGHT DECREASED [None]
  - DIARRHOEA [None]
  - TREMOR [None]
  - SUICIDE ATTEMPT [None]
